FAERS Safety Report 9234884 (Version 3)
Quarter: 2013Q2

REPORT INFORMATION
  Report Type: Spontaneous
  Country: FR (occurrence: FR)
  Receive Date: 20130416
  Receipt Date: 20130614
  Transmission Date: 20140414
  Serious: Yes (Hospitalization)
  Sender: FDA-Public Use
  Company Number: FR-VERTEX PHARMACEUTICALS INC.-2013-004915

PATIENT
  Age: 56 Year
  Sex: Male

DRUGS (4)
  1. INCIVO [Suspect]
     Indication: HEPATITIS C RNA
     Dosage: 1 DF, QD
     Route: 048
     Dates: start: 20130121, end: 20130312
  2. INCIVO [Suspect]
     Indication: HEPATITIS C
  3. COPEGUS [Suspect]
     Indication: HEPATITIS C RNA
     Dosage: DOSAGE FORM: UNSPECIFIED
     Route: 048
     Dates: start: 20130121, end: 20130317
  4. PEGASYS [Suspect]
     Indication: HEPATITIS C RNA
     Dosage: DOSAGE FORM: INJECTION
     Route: 058
     Dates: start: 20130121, end: 20130317

REACTIONS (2)
  - Drug reaction with eosinophilia and systemic symptoms [Recovered/Resolved]
  - Inappropriate schedule of drug administration [Unknown]
